FAERS Safety Report 7263144-5 (Version None)
Quarter: 2011Q1

REPORT INFORMATION
  Report Type: 
  Country: None (occurrence: None)
  Receive Date: 20110130
  Receipt Date: 20101011
  Transmission Date: 20110831
  Serious: No
  Sender: FDA-Public Use
  Company Number: US-ABBOTT-10P-163-0677665-00

PATIENT
  Age: 43 Year
  Sex: Female

DRUGS (6)
  1. PRILOSEC [Concomitant]
     Indication: BARRETT'S OESOPHAGUS
  2. BENTYL [Concomitant]
     Indication: GASTRIC DISORDER
  3. SULFASALAZINE [Concomitant]
     Indication: ARTHRALGIA
     Dosage: 2 TABS TWICE DAILY
  4. ZOFRAN [Concomitant]
     Indication: NAUSEA
  5. SULFASALAZINE [Concomitant]
     Indication: COLITIS
  6. HUMIRA [Suspect]
     Indication: COLITIS ULCERATIVE
     Dates: start: 20100801

REACTIONS (11)
  - FATIGUE [None]
  - NAUSEA [None]
  - DIZZINESS [None]
  - INNER EAR DISORDER [None]
  - ARTHRALGIA [None]
  - DIARRHOEA [None]
  - INJECTION SITE PAIN [None]
  - SINUS CONGESTION [None]
  - VOMITING [None]
  - INJECTION SITE ERYTHEMA [None]
  - INJECTION SITE URTICARIA [None]
